FAERS Safety Report 6071390-1 (Version None)
Quarter: 2009Q1

REPORT INFORMATION
  Report Type: 
  Country: None (occurrence: None)
  Receive Date: 20090204
  Receipt Date: 20090127
  Transmission Date: 20090719
  Serious: Yes (Hospitalization)
  Sender: FDA-Public Use
  Company Number: GXKR2009US01178

PATIENT
  Age: 52 Year
  Sex: Male

DRUGS (1)
  1. OXACILLIN [Suspect]

REACTIONS (2)
  - HEPATOCELLULAR INJURY [None]
  - NEOPLASM MALIGNANT [None]
